FAERS Safety Report 9633400 (Version 2)
Quarter: 2013Q4

REPORT INFORMATION
  Report Type: Spontaneous
  Country: US (occurrence: US)
  Receive Date: 20131021
  Receipt Date: 20131021
  Transmission Date: 20140711
  Serious: Yes (Disabling, Other)
  Sender: FDA-Public Use
  Company Number: US-BRISTOL-MYERS SQUIBB COMPANY-19209576

PATIENT
  Age: 79 Year
  Sex: Female
  Weight: 53.2 kg

DRUGS (1)
  1. YERVOY [Suspect]
     Dosage: 1DF=200MG/40ML(5MG/ML).?3MG/KG Q3WEEKSX4DOSES?01JUL13,22JUL13
     Route: 042
     Dates: start: 20130610, end: 20130722

REACTIONS (2)
  - Malignant neoplasm progression [Unknown]
  - Thrombocytopenia [Unknown]
